FAERS Safety Report 5320156-6 (Version None)
Quarter: 2007Q1

REPORT INFORMATION
  Report Type: 
  Country: None (occurrence: None)
  Receive Date: 20070209
  Receipt Date: 20061027
  Transmission Date: 20070707
  Serious: No
  Sender: FDA-Public Use
  Company Number: 200618492US

PATIENT
  Sex: Female

DRUGS (3)
  1. INSULIN GLARGINE (APIDRA) [Suspect]
     Dosage: 3 U
  2. OPTICLIK [Suspect]
  3. OPTICLIK [Suspect]

REACTIONS (2)
  - BLOOD GLUCOSE DECREASED [None]
  - BLOOD GLUCOSE INCREASED [None]
